FAERS Safety Report 17187157 (Version 6)
Quarter: 2020Q3

REPORT INFORMATION
  Report Type: Report from Study
  Country: US (occurrence: US)
  Receive Date: 20191220
  Receipt Date: 20200902
  Transmission Date: 20201102
  Serious: Yes (Other)
  Sender: FDA-Public Use
  Company Number: NVSC2019US076027

PATIENT
  Sex: Female

DRUGS (2)
  1. GILENYA [Suspect]
     Active Substance: FINGOLIMOD HYDROCHLORIDE
     Indication: MULTIPLE SCLEROSIS
     Dosage: 0.5 MG, QD
     Route: 048
     Dates: start: 20191123
  2. VITAMIN D [Concomitant]
     Active Substance: VITAMIN D NOS
     Indication: PRODUCT USED FOR UNKNOWN INDICATION
     Dosage: UNK
     Route: 065

REACTIONS (12)
  - Gait disturbance [Unknown]
  - Product dose omission issue [Unknown]
  - Blood pressure increased [Unknown]
  - Limb injury [Unknown]
  - Weight increased [Unknown]
  - Crying [Unknown]
  - Limb discomfort [Unknown]
  - Muscle spasms [Unknown]
  - White blood cell count decreased [Unknown]
  - Multiple sclerosis [Unknown]
  - Temperature intolerance [Unknown]
  - Vision blurred [Unknown]
